FAERS Safety Report 18272745 (Version 2)
Quarter: 2021Q2

REPORT INFORMATION
  Report Type: Spontaneous
  Country: ES (occurrence: ES)
  Receive Date: 20200916
  Receipt Date: 20210514
  Transmission Date: 20210717
  Serious: Yes (Death, Hospitalization)
  Sender: FDA-Public Use
  Company Number: ES-B.I. PHARMACEUTICALS,INC./RIDGEFIELD-2020-BI-045454

PATIENT
  Sex: Female

DRUGS (3)
  1. OFEV [Suspect]
     Active Substance: NINTEDANIB
     Indication: INTERSTITIAL LUNG DISEASE
     Dates: start: 202008, end: 202009
  2. OFEV [Suspect]
     Active Substance: NINTEDANIB
     Dosage: PATIENT CONTINUED WITH FULL?DOSE 150MG/12H UPON HOSPITAL DISCHARGE
     Route: 065
     Dates: start: 202009
  3. OFEV [Suspect]
     Active Substance: NINTEDANIB
     Indication: INTERSTITIAL LUNG DISEASE
     Dates: start: 202007, end: 202008

REACTIONS (3)
  - Respiratory tract infection [Recovered/Resolved]
  - Hepatic enzyme increased [Recovered/Resolved]
  - COVID-19 [Fatal]

NARRATIVE: CASE EVENT DATE: 202008
